FAERS Safety Report 12738487 (Version 1)
Quarter: 2016Q3

REPORT INFORMATION
  Report Type: Spontaneous
  Country: US (occurrence: US)
  Receive Date: 20160912
  Receipt Date: 20160912
  Transmission Date: 20161109
  Serious: No
  Sender: FDA-Public Use
  Company Number: US-SA-2016SA136813

PATIENT
  Sex: Male
  Weight: 97.52 kg

DRUGS (4)
  1. TOUJEO [Suspect]
     Active Substance: INSULIN GLARGINE
     Route: 065
  2. HUMALOG [Concomitant]
     Active Substance: INSULIN LISPRO
     Indication: DIABETES MELLITUS
  3. FUROSEMIDE. [Concomitant]
     Active Substance: FUROSEMIDE
  4. SOLOSTAR [Concomitant]
     Active Substance: DEVICE

REACTIONS (1)
  - Product use issue [Unknown]
